FAERS Safety Report 5051963-5 (Version None)
Quarter: 2006Q3

REPORT INFORMATION
  Report Type: 
  Country: None (occurrence: None)
  Receive Date: 20060710
  Receipt Date: 20060627
  Transmission Date: 20061208
  Serious: Yes (Other)
  Sender: FDA-Public Use
  Company Number: 2006081193

PATIENT
  Age: 47 Year
  Sex: Female
  Weight: 58.9676 kg

DRUGS (1)
  1. ROLAIDS [Suspect]
     Indication: DYSPEPSIA
     Dosage: 1 TABLET ONCE, ORAL
     Route: 048
     Dates: start: 20060626, end: 20060626

REACTIONS (5)
  - GLOSSODYNIA [None]
  - HYPERSENSITIVITY [None]
  - PERIORBITAL OEDEMA [None]
  - PRURITUS GENERALISED [None]
  - URTICARIA GENERALISED [None]
